FAERS Safety Report 10085214 (Version 1)
Quarter: 2014Q2

REPORT INFORMATION
  Report Type: Spontaneous
  Country: GB (occurrence: GB)
  Receive Date: 20140417
  Receipt Date: 20140417
  Transmission Date: 20141212
  Serious: Yes (Disabling, Other)
  Sender: FDA-Public Use
  Company Number: PHHY2014GB043219

PATIENT
  Age: 64 Year
  Sex: Female

DRUGS (1)
  1. CLINDAMYCIN [Suspect]
     Indication: TOOTH ABSCESS
     Dosage: 300 MG, QID
     Route: 048
     Dates: start: 20140326, end: 20140328

REACTIONS (3)
  - Arthralgia [Not Recovered/Not Resolved]
  - Myalgia [Not Recovered/Not Resolved]
  - Malaise [Not Recovered/Not Resolved]
